FAERS Safety Report 7425503-7 (Version None)
Quarter: 2011Q2

REPORT INFORMATION
  Report Type: 
  Country: None (occurrence: None)
  Receive Date: 20110412
  Receipt Date: 20110330
  Transmission Date: 20111010
  Serious: Yes (Other)
  Sender: FDA-Public Use
  Company Number: 029323

PATIENT
  Sex: Female
  Weight: 68 kg

DRUGS (3)
  1. CIMZIA [Suspect]
     Indication: RHEUMATOID ARTHRITIS
     Dosage: (SUBCUTANEOUS)
     Route: 058
     Dates: start: 20101028, end: 20110302
  2. CELEBREX [Concomitant]
  3. PREDNISOLONE [Concomitant]

REACTIONS (2)
  - NASAL MUCOSAL DISORDER [None]
  - STOMATITIS [None]
